FAERS Safety Report 24547756 (Version 1)
Quarter: 2024Q4

REPORT INFORMATION
  Report Type: Spontaneous
  Country: FR (occurrence: FR)
  Receive Date: 20241025
  Receipt Date: 20241025
  Transmission Date: 20250115
  Serious: Yes (Other)
  Sender: AUROBINDO
  Company Number: FR-GLAXOSMITHKLINE-FR2024GSK016706

PATIENT
  Age: 70 Year
  Sex: Female

DRUGS (6)
  1. PACLITAXEL [Suspect]
     Active Substance: PACLITAXEL
     Indication: Neoplasm
     Dosage: UNK
     Route: 065
  2. PACLITAXEL [Suspect]
     Active Substance: PACLITAXEL
     Indication: Endometrial cancer
  3. CARBOPLATIN [Suspect]
     Active Substance: CARBOPLATIN
     Indication: Neoplasm
     Dosage: UNK
     Route: 065
  4. CARBOPLATIN [Suspect]
     Active Substance: CARBOPLATIN
     Indication: Endometrial cancer
  5. DOSTARLIMAB [Suspect]
     Active Substance: DOSTARLIMAB
     Indication: Endometrial cancer
     Dosage: 1000 MILLIGRAM (1000 MG)
     Route: 042
     Dates: end: 20241001
  6. DOSTARLIMAB [Suspect]
     Active Substance: DOSTARLIMAB
     Indication: Endometrial cancer
     Dosage: 500 MILLIGRAM, EVERY 3 WEEKS (500 MG, Q3W)
     Route: 042
     Dates: start: 20240109

REACTIONS (3)
  - Malignant neoplasm progression [Unknown]
  - Hypothyroidism [Unknown]
  - Nausea [Unknown]

NARRATIVE: CASE EVENT DATE: 20240110
